FAERS Safety Report 5174544-1 (Version None)
Quarter: 2006Q4

REPORT INFORMATION
  Report Type: 
  Country: None (occurrence: None)
  Receive Date: 20061214
  Receipt Date: 20060607
  Transmission Date: 20070319
  Serious: No
  Sender: FDA-Public Use
  Company Number: US-AMGEN-KDL182273

PATIENT
  Sex: Female

DRUGS (2)
  1. ENBREL [Suspect]
     Indication: RHEUMATOID ARTHRITIS
     Route: 058
     Dates: start: 20030728
  2. METHOTREXATE [Concomitant]
     Route: 058
     Dates: start: 19960101

REACTIONS (2)
  - NODULE ON EXTREMITY [None]
  - STAPHYLOCOCCAL INFECTION [None]
